FAERS Safety Report 4847861-X (Version None)
Quarter: 2005Q4

REPORT INFORMATION
  Report Type: 
  Country: None (occurrence: None)
  Receive Date: 20051208
  Receipt Date: 20051129
  Transmission Date: 20060501
  Serious: Yes (Disabling, Other)
  Sender: FDA-Public Use
  Company Number: PHRM2005FR03079

PATIENT
  Age: 48 Year
  Sex: Female
  Weight: 80 kg

DRUGS (3)
  1. ZOMETA [Suspect]
     Indication: METASTASES TO BONE
     Dosage: 1 DF, UNK
     Route: 042
     Dates: start: 20050329, end: 20050329
  2. FASLODEX [Suspect]
     Indication: BREAST CANCER METASTATIC
     Dates: start: 20050901
  3. MORPHINE [Concomitant]
     Indication: SCIATICA

REACTIONS (7)
  - ANXIETY [None]
  - DENTAL PROSTHESIS USER [None]
  - GINGIVAL PAIN [None]
  - OSTEONECROSIS [None]
  - PERIODONTAL DISEASE [None]
  - PERSECUTORY DELUSION [None]
  - SCINTIGRAPHY [None]
